FAERS Safety Report 16314610 (Version 4)
Quarter: 2019Q3

REPORT INFORMATION
  Report Type: Spontaneous
  Country: JP (occurrence: JP)
  Receive Date: 20190515
  Receipt Date: 20190729
  Transmission Date: 20191004
  Serious: Yes (Other)
  Sender: FDA-Public Use
  Company Number: JP-PFIZER INC-2019198720

PATIENT
  Age: 74 Year
  Sex: Female

DRUGS (8)
  1. CELECOX [Suspect]
     Active Substance: CELECOXIB
     Dosage: 200 MG, 1X/DAY
  2. SHAKUYAKUKANZOTO [Suspect]
     Active Substance: HERBALS
     Dosage: UNK
     Route: 048
  3. VIVIANT [Suspect]
     Active Substance: BAZEDOXIFENE
     Dosage: 20 MG, DAILY
     Route: 048
  4. MYSLEE [Suspect]
     Active Substance: ZOLPIDEM TARTRATE
     Indication: INSOMNIA
     Dosage: 10 MG (1 TABLET), 1X/DAY
     Route: 048
     Dates: start: 2016, end: 201808
  5. LOXONIN [Concomitant]
     Active Substance: LOXOPROFEN SODIUM
     Dosage: UNK
     Route: 023
  6. SUMILU STICK [Concomitant]
     Dosage: UNK
     Route: 023
  7. LYRICA [Suspect]
     Active Substance: PREGABALIN
     Indication: SCIATICA
     Dosage: 25 MG, 2X/DAY
     Route: 048
     Dates: end: 20190507
  8. MYSLEE [Suspect]
     Active Substance: ZOLPIDEM TARTRATE
     Dosage: 5 MG (1 TABLET), 1X/DAY
     Route: 048
     Dates: start: 201809

REACTIONS (9)
  - Periarthritis [Unknown]
  - Road traffic accident [Recovered/Resolved]
  - Neuralgia [Unknown]
  - Distractibility [Recovered/Resolved]
  - Insomnia [Unknown]
  - Gastritis [Unknown]
  - Back pain [Unknown]
  - Osteoporosis postmenopausal [Unknown]
  - Eczema asteatotic [Unknown]

NARRATIVE: CASE EVENT DATE: 2016
